FAERS Safety Report 9036817 (Version 1)
Quarter: 2013Q1

REPORT INFORMATION
  Report Type: Report from Study
  Country: US (occurrence: US)
  Receive Date: 20130129
  Receipt Date: 20130129
  Transmission Date: 20140127
  Serious: No
  Sender: FDA-Public Use
  Company Number: US-ABBOTT-12P-163-0890520-00

PATIENT
  Age: 55 Year
  Sex: Female

DRUGS (2)
  1. HUMIRA 40 MG/ 0.8 ML PRE-FILLED SYRINGE [Suspect]
     Indication: RHEUMATOID ARTHRITIS
     Dates: start: 201106, end: 201111
  2. CELEBREX [Concomitant]
     Indication: RHEUMATOID ARTHRITIS
     Dosage: DAILY

REACTIONS (2)
  - Drug ineffective [Recovered/Resolved]
  - Injection site reaction [Recovered/Resolved]
